FAERS Safety Report 19380720 (Version 1)
Quarter: 2021Q2

REPORT INFORMATION
  Report Type: Report from Study
  Country: US (occurrence: US)
  Receive Date: 20210607
  Receipt Date: 20210607
  Transmission Date: 20210717
  Serious: No
  Sender: FDA-Public Use
  Company Number: NVSC2021US126105

PATIENT
  Age: 44 Year
  Sex: Female

DRUGS (1)
  1. KESIMPTA [Suspect]
     Active Substance: OFATUMUMAB
     Indication: RHABDOMYOSARCOMA
     Dosage: 20 MG, QW
     Route: 058
     Dates: start: 20210524

REACTIONS (5)
  - Sneezing [Unknown]
  - Impaired healing [Unknown]
  - Nasal congestion [Unknown]
  - Cough [Unknown]
  - Fatigue [Recovering/Resolving]

NARRATIVE: CASE EVENT DATE: 20210524
